FAERS Safety Report 8935885 (Version 1)
Quarter: 2012Q4

REPORT INFORMATION
  Report Type: 
  Country: US (occurrence: US)
  Receive Date: 20121130
  Receipt Date: 20121130
  Transmission Date: 20130627
  Serious: Yes (Other)
  Sender: FDA-Public Use
  Company Number: US-BAYER-2012-124195

PATIENT
  Age: 27 Year
  Sex: Female

DRUGS (1)
  1. MIRENA [Suspect]
     Indication: CONTRACEPTION
     Dosage: 20 mcg/24hr, CONT
     Route: 015
     Dates: start: 201012

REACTIONS (10)
  - Vaginal haemorrhage [None]
  - Alopecia [None]
  - Abdominal pain lower [None]
  - Pain [None]
  - Dizziness [None]
  - Headache [None]
  - Loss of libido [None]
  - Depression [None]
  - Amenorrhoea [None]
  - Rash pruritic [None]
